FAERS Safety Report 6147788-X (Version None)
Quarter: 2009Q2

REPORT INFORMATION
  Report Type: 
  Country: None (occurrence: None)
  Receive Date: 20090408
  Receipt Date: 20090327
  Transmission Date: 20091009
  Serious: Yes (Hospitalization, Other)
  Sender: FDA-Public Use
  Company Number: KR-PFIZER INC-2009191398

PATIENT

DRUGS (4)
  1. SUNITINIB MALATE [Suspect]
     Indication: RENAL CELL CARCINOMA
     Dosage: 37.5 MG, UNK
     Route: 048
     Dates: start: 20080131, end: 20081014
  2. AMIODARONE HYDROCHLORIDE [Concomitant]
     Indication: HYPERTENSION
     Dosage: 200 MG, DAILY
     Dates: start: 20080131, end: 20081022
  3. ALPRAZOLAM [Concomitant]
     Indication: INSOMNIA
     Dosage: 0.125 MG, DAILY
     Dates: start: 20080131, end: 20081022
  4. VALSARTAN [Concomitant]
     Indication: HYPERTENSION
     Dosage: 320 MG, DAILY
     Dates: start: 20080131, end: 20081022

REACTIONS (15)
  - ANAEMIA [None]
  - ANOREXIA [None]
  - ASTHENIA [None]
  - CONDITION AGGRAVATED [None]
  - COUGH [None]
  - DYSPHONIA [None]
  - DYSPNOEA [None]
  - HAEMATURIA [None]
  - HAEMOGLOBIN DECREASED [None]
  - HERPES ZOSTER [None]
  - LEUKOPENIA [None]
  - NEURALGIA [None]
  - RASH [None]
  - THROMBOCYTOPENIA [None]
  - UPPER RESPIRATORY TRACT INFECTION [None]
